FAERS Safety Report 19144755 (Version 1)
Quarter: 2021Q2

REPORT INFORMATION
  Report Type: Spontaneous
  Country: US (occurrence: US)
  Receive Date: 20210415
  Receipt Date: 20210415
  Transmission Date: 20210717
  Serious: No
  Sender: FDA-Public Use
  Company Number: None

PATIENT
  Age: 67 Year
  Sex: Female
  Weight: 74.25 kg

DRUGS (8)
  1. MULTI  VITAMIN [Concomitant]
     Active Substance: VITAMINS
  2. TALTZ [Suspect]
     Active Substance: IXEKIZUMAB
     Indication: PSORIATIC ARTHROPATHY
     Dosage: OTHER FREQUENCY:EVERY 30 DAYS;?
     Route: 058
     Dates: start: 20210414
  3. IRON [Concomitant]
     Active Substance: IRON
  4. VOLTAREN [Concomitant]
     Active Substance: DICLOFENAC SODIUM
  5. BIOTIN [Concomitant]
     Active Substance: BIOTIN
  6. BLACK COHOSH [Concomitant]
     Active Substance: BLACK COHOSH
  7. TALTZ [Suspect]
     Active Substance: IXEKIZUMAB
     Indication: GUTTATE PSORIASIS
     Dosage: OTHER FREQUENCY:EVERY 30 DAYS;?
     Route: 058
     Dates: start: 20210414
  8. LISINOPRIL. [Concomitant]
     Active Substance: LISINOPRIL

REACTIONS (9)
  - Injection site warmth [None]
  - Rash macular [None]
  - Injection site pain [None]
  - Injection site pruritus [None]
  - Injection site inflammation [None]
  - Injection site rash [None]
  - Injection site erythema [None]
  - Injection site discolouration [None]
  - Psoriasis [None]

NARRATIVE: CASE EVENT DATE: 20210415
